FAERS Safety Report 11886883 (Version 2)
Quarter: 2016Q2

REPORT INFORMATION
  Report Type: Spontaneous
  Country: US (occurrence: US)
  Receive Date: 20160104
  Receipt Date: 20160418
  Transmission Date: 20160815
  Serious: No
  Sender: FDA-Public Use
  Company Number: US-LEO PHARMA-239419

PATIENT
  Age: 63 Year
  Sex: Female

DRUGS (1)
  1. PICATO [Suspect]
     Active Substance: INGENOL MEBUTATE
     Indication: ACTINIC KERATOSIS
     Route: 061
     Dates: start: 20151228, end: 20151230

REACTIONS (7)
  - Application site dryness [Recovered/Resolved]
  - Application site reaction [Recovered/Resolved]
  - Application site erythema [Recovered/Resolved]
  - Drug administration error [Unknown]
  - Application site vesicles [Recovered/Resolved]
  - Application site pruritus [Recovered/Resolved]
  - Application site warmth [Recovered/Resolved]

NARRATIVE: CASE EVENT DATE: 20151229
